FAERS Safety Report 14171981 (Version 2)
Quarter: 2017Q4

REPORT INFORMATION
  Report Type: Spontaneous
  Country: RO (occurrence: RO)
  Receive Date: 20171108
  Receipt Date: 20171117
  Transmission Date: 20180321
  Serious: Yes (Death, Hospitalization)
  Sender: FDA-Public Use
  Company Number: RO-AMGEN-ROUSP2017168242

PATIENT
  Age: 50 Year
  Sex: Female
  Weight: 45 kg

DRUGS (3)
  1. FUROSEMIDE. [Concomitant]
     Active Substance: FUROSEMIDE
     Dosage: 40 MG, UNK
  2. SINTROM [Concomitant]
     Active Substance: ACENOCOUMAROL
     Indication: ANTICOAGULANT THERAPY
     Dosage: 4 MG, QD
     Route: 048
     Dates: start: 20160521
  3. ENBREL [Suspect]
     Active Substance: ETANERCEPT
     Indication: PSORIASIS
     Dosage: 50 MG, WEEKLY
     Route: 058
     Dates: start: 2013, end: 20171025

REACTIONS (1)
  - Haematoma [Fatal]
